FAERS Safety Report 20351472 (Version 2)
Quarter: 2022Q2

REPORT INFORMATION
  Report Type: Spontaneous
  Country: JP (occurrence: JP)
  Receive Date: 20220119
  Receipt Date: 20220407
  Transmission Date: 20220720
  Serious: Yes (Hospitalization)
  Sender: FDA-Public Use
  Company Number: JP-Eisai-202110714_LEN-HCC_P_1

PATIENT
  Age: 81 Year
  Sex: Male
  Weight: 60 kg

DRUGS (2)
  1. LENVIMA [Suspect]
     Active Substance: LENVATINIB
     Indication: Hepatocellular carcinoma
     Route: 048
     Dates: start: 20211228, end: 20220104
  2. LENVIMA [Suspect]
     Active Substance: LENVATINIB
     Dosage: 5 DAYS ON/2 DAYS OFF
     Route: 048
     Dates: start: 20220114

REACTIONS (1)
  - Diarrhoea [Recovered/Resolved]

NARRATIVE: CASE EVENT DATE: 20211231
